FAERS Safety Report 17789321 (Version 3)
Quarter: 2020Q3

REPORT INFORMATION
  Report Type: Spontaneous
  Country: US (occurrence: US)
  Receive Date: 20200515
  Receipt Date: 20200905
  Transmission Date: 20201102
  Serious: No
  Sender: FDA-Public Use
  Company Number: US-009507513-2005USA004549

PATIENT
  Age: 17 Year
  Sex: Female
  Weight: 66.67 kg

DRUGS (1)
  1. NEXPLANON [Suspect]
     Active Substance: ETONOGESTREL
     Indication: CONTRACEPTION
     Dosage: 1 ROD EVERY 3 YEARS IN THE RIGHT ARM
     Route: 059
     Dates: start: 20200506

REACTIONS (2)
  - Complication associated with device [Recovered/Resolved]
  - Implant site swelling [Recovered/Resolved]

NARRATIVE: CASE EVENT DATE: 20200513
